FAERS Safety Report 8111574-1 (Version None)
Quarter: 2012Q1

REPORT INFORMATION
  Report Type: 
  Country: None (occurrence: None)
  Receive Date: 20120202
  Receipt Date: 20120202
  Transmission Date: 20120608
  Serious: Yes (Hospitalization)
  Sender: FDA-Public Use
  Company Number: None

PATIENT
  Age: 73 Year
  Sex: Male

DRUGS (1)
  1. TRAZODONE HCL [Suspect]
     Indication: INSOMNIA
     Dosage: 50MG H.S. 047
     Route: 048

REACTIONS (1)
  - CONFUSIONAL STATE [None]
